FAERS Safety Report 7220099-7 (Version None)
Quarter: 2011Q1

REPORT INFORMATION
  Report Type: 
  Country: None (occurrence: None)
  Receive Date: 20110111
  Receipt Date: 20101229
  Transmission Date: 20110831
  Serious: Yes (Other)
  Sender: FDA-Public Use
  Company Number: B0690698A

PATIENT
  Sex: Female

DRUGS (1)
  1. ACITRETIN [Suspect]
     Indication: PSORIASIS
     Dosage: 20MCG PER DAY
     Route: 048
     Dates: start: 20040401

REACTIONS (3)
  - OSTEOPOROSIS [None]
  - BONE DENSITY DECREASED [None]
  - OSTEOPENIA [None]
